FAERS Safety Report 25366337 (Version 4)
Quarter: 2025Q4

REPORT INFORMATION
  Report Type: Report from Study
  Country: JP (occurrence: JP)
  Receive Date: 20250528
  Receipt Date: 20251120
  Transmission Date: 20260118
  Serious: Yes (Hospitalization)
  Sender: TAKEDA
  Company Number: JP-TAKEDA-2025TJP004996

PATIENT
  Age: 6 Decade
  Sex: Female

DRUGS (1)
  1. MARIBAVIR [Suspect]
     Active Substance: MARIBAVIR
     Indication: Cytomegalovirus infection
     Dosage: 400 MILLIGRAM, BID
     Dates: start: 20250215, end: 20250522

REACTIONS (3)
  - Drug ineffective [Unknown]
  - Malaise [Unknown]
  - Drug resistance [Unknown]

NARRATIVE: CASE EVENT DATE: 20250516
